FAERS Safety Report 4717812-7 (Version None)
Quarter: 2005Q3

REPORT INFORMATION
  Report Type: 
  Country: None (occurrence: None)
  Receive Date: 20050715
  Receipt Date: 20040707
  Transmission Date: 20060218
  Serious: Yes (Hospitalization)
  Sender: FDA-Public Use
  Company Number: 2004-00178

PATIENT
  Age: 48 Year
  Sex: Male
  Weight: 65 kg

DRUGS (11)
  1. INTEGRILIN [Suspect]
     Indication: ACUTE CORONARY SYNDROME
     Dosage: SEE IMAGE
     Route: 040
     Dates: start: 20040429, end: 20040429
  2. INTEGRILIN [Suspect]
     Indication: ACUTE CORONARY SYNDROME
     Dosage: SEE IMAGE
     Route: 040
     Dates: start: 20040429, end: 20040429
  3. LOVENOX [Suspect]
     Dosage: 1.00 MG/KG, SUBCUTANEOUS
     Route: 058
     Dates: start: 20040429, end: 20040430
  4. PLAVIX [Concomitant]
  5. ACETYLSALICYLIC ACID SRT [Concomitant]
  6. NTG (GLYCERYL TRINITRATE) [Concomitant]
  7. TYLENOL (PARACETAMOL) [Concomitant]
  8. LORIDINE (CEFALORIDINE) [Concomitant]
  9. ATENOLOL [Concomitant]
  10. PEPCID [Concomitant]
  11. LIPITOR [Concomitant]

REACTIONS (2)
  - DRUG HYPERSENSITIVITY [None]
  - THROMBOCYTOPENIA [None]
